FAERS Safety Report 19645276 (Version 3)
Quarter: 2021Q4

REPORT INFORMATION
  Report Type: Report from Study
  Country: ES (occurrence: ES)
  Receive Date: 20210802
  Receipt Date: 20211018
  Transmission Date: 20220303
  Serious: Yes (Life-Threatening, Hospitalization)
  Sender: FDA-Public Use
  Company Number: ES-ROCHE-2876229

PATIENT
  Age: 58 Year
  Sex: Female
  Weight: 58.5 kg

DRUGS (8)
  1. ATEZOLIZUMAB [Suspect]
     Active Substance: ATEZOLIZUMAB
     Indication: Non-small cell lung cancer
     Dosage: DATE OF LAST ADMIN. BEFORE SAE:02/JUL/2021 ON DAY ONE OF EVERY 3-WEEK (3 DAYS) CYCLE
     Route: 042
     Dates: start: 20210319
  2. BEVACIZUMAB [Suspect]
     Active Substance: BEVACIZUMAB
     Indication: Non-small cell lung cancer
     Dosage: DATE OF LAST ADMINISTRATION BEFORE SAE:02/JUL/2021
     Route: 042
     Dates: start: 20210319
  3. CARBOPLATIN [Suspect]
     Active Substance: CARBOPLATIN
     Indication: Non-small cell lung cancer
     Dosage: DATE OF LAST ADMINISTRATION BEFORE SAE :21/MAY/2021?AUC 5 EVERY 3 WEEKS FOR 4-6 CYCLES
     Route: 042
     Dates: start: 20210319
  4. PACLITAXEL [Suspect]
     Active Substance: PACLITAXEL
     Indication: Non-small cell lung cancer
     Dosage: DATE OF LAST ADMINISTRATION BEFORE SAE:21/MAY/2021?175-200 MG/M2 (AT THE INVESTIGATORS^ DISCRETION),
     Route: 042
     Dates: start: 20210319
  5. BEMIPARIN [Concomitant]
     Active Substance: BEMIPARIN
  6. TINZAPARIN SODIUM [Concomitant]
     Active Substance: TINZAPARIN SODIUM
  7. PREDNISONE [Concomitant]
     Active Substance: PREDNISONE
  8. FUROSEMIDE [Concomitant]
     Active Substance: FUROSEMIDE

REACTIONS (3)
  - Renal disorder [Not Recovered/Not Resolved]
  - Nephrotic syndrome [Recovered/Resolved]
  - Hyponatraemia [Recovered/Resolved]

NARRATIVE: CASE EVENT DATE: 20210715
